FAERS Safety Report 17554314 (Version 1)
Quarter: 2020Q1

REPORT INFORMATION
  Report Type: Spontaneous
  Country: GB (occurrence: GB)
  Receive Date: 20200318
  Receipt Date: 20200318
  Transmission Date: 20200409
  Serious: Yes (Life-Threatening, Hospitalization, Disabling)
  Sender: FDA-Public Use
  Company Number: GB-DEXPHARM-20200255

PATIENT
  Age: 50 Year
  Sex: Female

DRUGS (4)
  1. TRIMETHOPRIM. [Concomitant]
     Active Substance: TRIMETHOPRIM
     Dosage: 3 DAY COURSE
     Dates: start: 20191204
  2. VENLAFAXINE [Suspect]
     Active Substance: VENLAFAXINE HYDROCHLORIDE
     Indication: DEPRESSION
     Dosage: DISCONTINUED THEN REINTRODUCED AT REDUCED DOSE ON PSYCHIATRY ADVICE
     Route: 048
  3. VENLAFAXINE [Suspect]
     Active Substance: VENLAFAXINE HYDROCHLORIDE
     Indication: DEPRESSION
     Dosage: DISCONTINUED THEN REINTRODUCED AT REDUCED DOSE ON PSYCHIATRY ADVICE
     Route: 048
  4. BALSALAZIDE [Suspect]
     Active Substance: BALSALAZIDE
     Indication: COLITIS ULCERATIVE
     Route: 048

REACTIONS (1)
  - Dyspnoea [Unknown]

NARRATIVE: CASE EVENT DATE: 20200108
